FAERS Safety Report 10177762 (Version 1)
Quarter: 2014Q2

REPORT INFORMATION
  Report Type: Spontaneous
  Country: US (occurrence: US)
  Receive Date: 20140516
  Receipt Date: 20140516
  Transmission Date: 20141212
  Serious: No
  Sender: FDA-Public Use
  Company Number: US-SANOFI-AVENTIS-2013SA065683

PATIENT
  Sex: Female

DRUGS (21)
  1. APIDRA SOLOSTAR [Suspect]
     Route: 058
     Dates: start: 20121025
  2. SOLOSTAR [Suspect]
     Dates: start: 20121025
  3. ALLOPURINOL [Concomitant]
     Route: 048
  4. ASPIRIN [Concomitant]
     Route: 048
  5. BIOTIN [Concomitant]
     Route: 048
  6. CLOPIDOGREL BISULFATE [Concomitant]
     Route: 065
     Dates: start: 20120820
  7. CRESTOR [Concomitant]
     Route: 048
     Dates: start: 20110406
  8. FISH OIL [Concomitant]
     Route: 048
  9. STOOL SOFTENER [Concomitant]
     Indication: CONSTIPATION
     Dosage: DOSE:1 OR 2 TABLETS
     Route: 065
  10. CYMBALTA [Concomitant]
     Route: 048
     Dates: start: 20120323
  11. GABAPENTIN [Concomitant]
     Route: 048
     Dates: start: 20121026
  12. HYDROCHLOROTHIAZIDE [Concomitant]
     Route: 048
     Dates: start: 20120322
  13. LEVOTHYROXINE SODIUM [Concomitant]
     Dosage: ON EVEN DAYS -- ALTERNATE WITH?200MCG DOSE
     Route: 048
     Dates: start: 20120420
  14. LEVOTHYROXINE SODIUM [Concomitant]
     Dosage: ON EVEN DAYS
     Route: 048
  15. LISINOPRIL [Concomitant]
     Route: 048
     Dates: start: 20120217
  16. METOPROLOL TARTRATE [Concomitant]
     Route: 048
     Dates: start: 20110518
  17. NOVOLOG MIX [Concomitant]
     Dosage: 100 UNIT/ML
     Route: 065
     Dates: start: 20110517
  18. PLAVIX [Concomitant]
     Route: 048
     Dates: start: 20111024
  19. SIMVASTATIN [Concomitant]
     Route: 048
     Dates: start: 20121022
  20. TRILIPIX [Concomitant]
     Route: 048
     Dates: start: 20110412
  21. VITAMIN D [Concomitant]
     Dosage: FREQUENCY:HREE TIMES WEEKLY? DOSE:50000 UNIT(S)
     Route: 048
     Dates: start: 20120420

REACTIONS (4)
  - Weight increased [Unknown]
  - Oedema peripheral [Unknown]
  - Increased appetite [Unknown]
  - Fatigue [Unknown]
